FAERS Safety Report 8836707 (Version 1)
Quarter: 2012Q4

REPORT INFORMATION
  Report Type: Spontaneous
  Country: US (occurrence: None)
  Receive Date: 20121010
  Receipt Date: 20121010
  Transmission Date: 20130627
  Serious: Yes (Hospitalization)
  Sender: FDA-Public Use
  Company Number: DSU-2012-07819

PATIENT
  Age: 74 Year
  Sex: Female
  Weight: 65.77 kg

DRUGS (10)
  1. BENICAR [Suspect]
     Indication: HYPERTENSION
     Route: 048
     Dates: start: 2009
  2. NIASPAN [Suspect]
     Indication: HYPERLIPIDEMIA
     Route: 048
     Dates: start: 2010
  3. NEXIUM [Suspect]
     Indication: DRUG USE FOR UNKNOWN INDICATION
     Route: 048
     Dates: start: 2012, end: 201204
  4. OMEPRAZOLE [Suspect]
     Indication: DRUG USE FOR UNKNOWN INDICATION
     Route: 048
     Dates: start: 2012, end: 2012
  5. VITAMIN D [Suspect]
  6. LISINOPRIL [Concomitant]
  7. FERROUS GLUCONATE [Concomitant]
  8. SYNTHROID (LEVOTHYROXINE SODIUM) (100 MICROGRAM) (LEVOTHYROXINE SODIUM) [Concomitant]
  9. ASPIRIN (ACETYLSALICYLIC ACID) (81 MILLIGRAM) [Concomitant]
  10. PLAVIX (CLOPIDOGREL) (CLOPIDOGREL) [Concomitant]

REACTIONS (6)
  - Coronary artery occlusion [None]
  - Hypotension [None]
  - Rash papular [None]
  - Rash pruritic [None]
  - Toxicity to various agents [None]
  - Gastrooesophageal reflux disease [None]
